FAERS Safety Report 5427760-5 (Version None)
Quarter: 2007Q3

REPORT INFORMATION
  Report Type: 
  Country: None (occurrence: None)
  Receive Date: 20070823
  Receipt Date: 20070810
  Transmission Date: 20080115
  Serious: Yes (Other)
  Sender: FDA-Public Use
  Company Number: S07-USA-03448-01

PATIENT
  Age: 78 Year
  Sex: Male

DRUGS (1)
  1. CELEXA [Suspect]
     Dosage: 20 MG QD PO
     Route: 048
     Dates: start: 20050101

REACTIONS (1)
  - DEMENTIA ALZHEIMER'S TYPE [None]
